FAERS Safety Report 23036365 (Version 8)
Quarter: 2024Q1

REPORT INFORMATION
  Report Type: Spontaneous
  Country: CA (occurrence: CA)
  Receive Date: 20231006
  Receipt Date: 20240322
  Transmission Date: 20240409
  Serious: Yes (Hospitalization, Other)
  Sender: FDA-Public Use
  Company Number: CA-CELLTRION INC.-2023CA015464

PATIENT

DRUGS (7)
  1. INFLECTRA [Suspect]
     Active Substance: INFLIXIMAB-DYYB
     Indication: Crohn^s disease
     Dosage: 300 MG, INDUCTION WEEKS 0, 2, 6 MAINTENANCE Q 8 WEEKS
     Route: 042
     Dates: start: 20230803
  2. INFLECTRA [Suspect]
     Active Substance: INFLIXIMAB-DYYB
     Dosage: 300 MG, INDUCTION WEEKS 0, 2, 6 MAINTENANCE Q 8 WEEKS
     Route: 042
     Dates: start: 20230817
  3. INFLECTRA [Suspect]
     Active Substance: INFLIXIMAB-DYYB
     Dosage: 300 MG, INDUCTION WEEKS 0, 2, 6 MAINTENANCE Q 8 WEEKS (5 WEEKS AND 5 DAYS)
     Route: 042
     Dates: start: 20230926
  4. INFLECTRA [Suspect]
     Active Substance: INFLIXIMAB-DYYB
     Dosage: 300 MG, 8 WEEKS AND 2 DAYS
     Route: 042
     Dates: start: 20231123
  5. INFLECTRA [Suspect]
     Active Substance: INFLIXIMAB-DYYB
     Dosage: 600 MG EVERY 6 WEEKS (RECEIVED IN HOSPITAL)
     Route: 042
     Dates: start: 20240109
  6. INFLECTRA [Suspect]
     Active Substance: INFLIXIMAB-DYYB
     Dosage: 600 MG EVERY 6 WEEKS
     Route: 042
     Dates: start: 20240220
  7. ENTOCORT [Concomitant]
     Active Substance: BUDESONIDE
     Dosage: UNK

REACTIONS (13)
  - Loss of consciousness [Recovered/Resolved]
  - COVID-19 [Recovering/Resolving]
  - Syncope [Unknown]
  - Fall [Unknown]
  - Localised infection [Unknown]
  - Precancerous condition [Recovering/Resolving]
  - Drug level decreased [Unknown]
  - Weight decreased [Recovering/Resolving]
  - Cough [Not Recovered/Not Resolved]
  - Off label use [Unknown]
  - Off label use [Unknown]
  - Intentional product use issue [Unknown]
  - Inappropriate schedule of product administration [Unknown]

NARRATIVE: CASE EVENT DATE: 20230101
